FAERS Safety Report 5843731-9 (Version None)
Quarter: 2008Q3

REPORT INFORMATION
  Report Type: 
  Country: None (occurrence: None)
  Receive Date: 20080813
  Receipt Date: 20080508
  Transmission Date: 20090109
  Serious: Yes (Other)
  Sender: FDA-Public Use
  Company Number: US-BRISTOL-MYERS SQUIBB COMPANY-14184550

PATIENT
  Sex: Female

DRUGS (2)
  1. IXEMPRA KIT [Suspect]
  2. XELODA [Concomitant]

REACTIONS (1)
  - NEUROPATHY PERIPHERAL [None]
